FAERS Safety Report 15664975 (Version 2)
Quarter: 2018Q4

REPORT INFORMATION
  Report Type: Spontaneous
  Country: FR (occurrence: FR)
  Receive Date: 20181128
  Receipt Date: 20181211
  Transmission Date: 20190205
  Serious: Yes (Congenital Anomaly)
  Sender: FDA-Public Use
  Company Number: FR-PROVELL PHARMACEUTICALS-2059341

PATIENT
  Sex: Female

DRUGS (3)
  1. ALEPSAL [Suspect]
     Active Substance: ATROPA BELLADONNA\CAFFEINE\PHENOBARBITAL
  2. EUTHYROX [Suspect]
     Active Substance: LEVOTHYROXINE SODIUM
     Indication: HYPOTHYROIDISM
  3. DEPAKINE [Suspect]
     Active Substance: VALPROATE SODIUM

REACTIONS (6)
  - Learning disorder [Not Recovered/Not Resolved]
  - Kyphosis [Not Recovered/Not Resolved]
  - Intellectual disability [Not Recovered/Not Resolved]
  - Sleep apnoea syndrome [Not Recovered/Not Resolved]
  - Aphasia [Not Recovered/Not Resolved]
  - Language disorder [Not Recovered/Not Resolved]

NARRATIVE: CASE EVENT DATE: 20070726
